FAERS Safety Report 10192914 (Version 1)
Quarter: 2014Q2

REPORT INFORMATION
  Report Type: Report from Study
  Country: AR (occurrence: AR)
  Receive Date: 20140523
  Receipt Date: 20140523
  Transmission Date: 20141212
  Serious: No
  Sender: FDA-Public Use
  Company Number: AR-ABBVIE-14P-007-1238435-00

PATIENT
  Sex: Female

DRUGS (3)
  1. HUMIRA [Suspect]
     Indication: RHEUMATOID ARTHRITIS
     Route: 058
     Dates: start: 20120611
  2. FLU VACCINE [Suspect]
     Indication: PRODUCT USED FOR UNKNOWN INDICATION
  3. PNEUMONIA VACCINE [Suspect]

REACTIONS (2)
  - Immunodeficiency [Unknown]
  - Eye infection viral [None]
